FAERS Safety Report 9734102 (Version 1)
Quarter: 2013Q4

REPORT INFORMATION
  Report Type: Spontaneous
  Country: US (occurrence: US)
  Receive Date: 20131205
  Receipt Date: 20131205
  Transmission Date: 20140711
  Serious: Yes (Other)
  Sender: FDA-Public Use
  Company Number: CHPA2013US017836

PATIENT
  Age: 84 Year
  Sex: Female

DRUGS (1)
  1. VOLTAREN GEL [Suspect]
     Dosage: UNK
     Route: 061
     Dates: start: 2012

REACTIONS (3)
  - Carotid artery occlusion [Unknown]
  - Renal artery stent placement [Unknown]
  - Drug dispensed to wrong patient [Unknown]
